FAERS Safety Report 7668985-8 (Version None)
Quarter: 2011Q3

REPORT INFORMATION
  Report Type: 
  Country: None (occurrence: None)
  Receive Date: 20110808
  Receipt Date: 20110727
  Transmission Date: 20111222
  Serious: Yes (Hospitalization)
  Sender: FDA-Public Use
  Company Number: GB-GLAXOSMITHKLINE-B0737559A

PATIENT
  Sex: Female

DRUGS (10)
  1. CHLORAMBUCIL [Suspect]
     Indication: CHRONIC LYMPHOCYTIC LEUKAEMIA
     Dosage: 10MG CYCLIC
     Route: 048
     Dates: start: 20090219
  2. RITUXIMAB [Suspect]
     Indication: CHRONIC LYMPHOCYTIC LEUKAEMIA
     Dosage: 900MG MONTHLY
     Route: 042
     Dates: start: 20090219
  3. ACETAMINOPHEN [Concomitant]
     Dates: start: 20090617
  4. TRAMADOL HCL [Concomitant]
     Dates: start: 20090617
  5. FLUCONAZOLE [Concomitant]
     Dates: start: 20090617
  6. ORAMORPH SR [Concomitant]
     Dates: start: 20090617
  7. MORPHINE [Concomitant]
     Dates: start: 20090617
  8. ENOXAPARIN SODIUM [Concomitant]
     Dates: start: 20090610
  9. METOCLOPRAMIDE [Concomitant]
     Dates: start: 20090219
  10. ACYCLOVIR [Concomitant]
     Dates: start: 20090617

REACTIONS (2)
  - ANAEMIA [None]
  - NEUTROPENIC SEPSIS [None]
